FAERS Safety Report 8831614 (Version 1)
Quarter: 2012Q4

REPORT INFORMATION
  Report Type: 
  Country: US (occurrence: US)
  Receive Date: 20121009
  Receipt Date: 20121009
  Transmission Date: 20130627
  Serious: Yes (Hospitalization)
  Sender: FDA-Public Use
  Company Number: US-GLAXOSMITHKLINE-A0996716A

PATIENT
  Age: 71 Year
  Sex: Male

DRUGS (2)
  1. VOTRIENT [Suspect]
     Indication: PRODUCT USED FOR UNKNOWN INDICATION
     Dosage: 600MG Per day
     Route: 048
     Dates: start: 20110401
  2. IMODIUM [Concomitant]

REACTIONS (11)
  - Tumour excision [Unknown]
  - Lung neoplasm [Unknown]
  - Obstructive airways disorder [Unknown]
  - Dyspnoea [Unknown]
  - Contusion [Unknown]
  - Impaired healing [Unknown]
  - Migraine [Recovered/Resolved]
  - Protein urine present [Unknown]
  - Hair colour changes [Unknown]
  - Diarrhoea [Unknown]
  - Nausea [Unknown]
